FAERS Safety Report 8086586-7 (Version None)
Quarter: 2012Q1

REPORT INFORMATION
  Report Type: 
  Country: None (occurrence: None)
  Receive Date: 20120128
  Receipt Date: 20110512
  Transmission Date: 20120608
  Serious: No
  Sender: FDA-Public Use
  Company Number: US-ABBOTT-11P-163-0725200-00

PATIENT
  Age: 43 Year
  Sex: Female

DRUGS (1)
  1. HUMIRA [Suspect]
     Indication: PSORIASIS
     Dates: start: 20110413

REACTIONS (16)
  - RASH PAPULAR [None]
  - SKIN FISSURES [None]
  - RESTLESSNESS [None]
  - RASH [None]
  - RASH PRURITIC [None]
  - INSOMNIA [None]
  - DAYDREAMING [None]
  - PAIN IN EXTREMITY [None]
  - INJECTION SITE PAPULE [None]
  - OEDEMA PERIPHERAL [None]
  - INJECTION SITE ERYTHEMA [None]
  - SKIN DISCOLOURATION [None]
  - URTICARIA [None]
  - PRURITUS [None]
  - INJECTION SITE REACTION [None]
  - FATIGUE [None]
